FAERS Safety Report 7007031-6 (Version None)
Quarter: 2010Q3

REPORT INFORMATION
  Report Type: 
  Country: None (occurrence: None)
  Receive Date: 20100922
  Receipt Date: 20100913
  Transmission Date: 20110219
  Serious: Yes (Hospitalization, Other)
  Sender: FDA-Public Use
  Company Number: GB-ASTRAZENECA-2010SE37626

PATIENT
  Age: 21999 Day
  Sex: Female

DRUGS (5)
  1. IRESSA [Suspect]
     Indication: NON-SMALL CELL LUNG CANCER
     Route: 048
     Dates: start: 20100701, end: 20100703
  2. DEXAMETHASONE [Concomitant]
     Indication: CRANIOTOMY
  3. VALPROATE SODIUM [Concomitant]
     Indication: CRANIOTOMY
  4. PROPRANOLOL [Concomitant]
  5. CLEXANE [Concomitant]
     Indication: PULMONARY EMBOLISM

REACTIONS (5)
  - EYE PAIN [None]
  - ORAL PAIN [None]
  - PYREXIA [None]
  - RASH [None]
  - STEVENS-JOHNSON SYNDROME [None]
